FAERS Safety Report 24096596 (Version 2)
Quarter: 2024Q3

REPORT INFORMATION
  Report Type: Spontaneous
  Country: KR (occurrence: KR)
  Receive Date: 20240716
  Receipt Date: 20240719
  Transmission Date: 20241016
  Serious: Yes (Death)
  Sender: ELI LILLY AND CO
  Company Number: KR-ELI_LILLY_AND_COMPANY-KR202407007177

PATIENT
  Sex: Male

DRUGS (1)
  1. CYRAMZA [Suspect]
     Active Substance: RAMUCIRUMAB
     Indication: Product used for unknown indication
     Dosage: UNK UNK, UNKNOWN
     Route: 065

REACTIONS (1)
  - Death [Fatal]

NARRATIVE: CASE EVENT DATE: 20240101
